FAERS Safety Report 19734279 (Version 1)
Quarter: 2021Q3

REPORT INFORMATION
  Report Type: Spontaneous
  Country: US (occurrence: US)
  Receive Date: 20210823
  Receipt Date: 20210823
  Transmission Date: 20211014
  Serious: No
  Sender: FDA-Public Use
  Company Number: US-SA-2021SA274464

PATIENT
  Age: 87 Year
  Sex: Male

DRUGS (2)
  1. LANTUS SOLOSTAR [Suspect]
     Active Substance: INSULIN GLARGINE
     Indication: TYPE 2 DIABETES MELLITUS
     Dosage: DRUG STRUCTURE DOSAGE : 50 UNITS DRUG INTERVAL DOSAGE : TWICE A DAY DRUG TREATMENT DURATION: NA
  2. NA [Concomitant]
     Active Substance: SODIUM
     Dosage: UNK

REACTIONS (1)
  - Product packaging issue [Unknown]
